FAERS Safety Report 6857986-5 (Version None)
Quarter: 2010Q2

REPORT INFORMATION
  Report Type: 
  Country: None (occurrence: None)
  Receive Date: 20100630
  Receipt Date: 20100426
  Transmission Date: 20101027
  Serious: No
  Sender: FDA-Public Use
  Company Number: 1000013402

PATIENT
  Age: 50 Year
  Sex: Female

DRUGS (4)
  1. BYSTOLIC [Suspect]
     Indication: HEART RATE INCREASED
     Dosage: 5 MG (5 MG, 1 IN 1 D), ORAL, 2.5MG (2.5 MG, 1 IN 1 D), ORAL
     Route: 048
     Dates: start: 20081001, end: 20091201
  2. BYSTOLIC [Suspect]
     Indication: HEART RATE INCREASED
     Dosage: 5 MG (5 MG, 1 IN 1 D), ORAL, 2.5MG (2.5 MG, 1 IN 1 D), ORAL
     Route: 048
     Dates: start: 20091201
  3. ACIPHEX [Concomitant]
  4. BIRTH CONTROL PILLS (NOS) (TABLETS) [Concomitant]

REACTIONS (2)
  - ARTHRALGIA [None]
  - HYPOAESTHESIA [None]
